FAERS Safety Report 6163309-X (Version None)
Quarter: 2009Q2

REPORT INFORMATION
  Report Type: 
  Country: None (occurrence: None)
  Receive Date: 20090420
  Receipt Date: 20090420
  Transmission Date: 20091009
  Serious: No
  Sender: FDA-Public Use
  Company Number: None

PATIENT

DRUGS (11)
  1. LISINOPRIL AND HYDROCHLOROTHIAZIDE [Suspect]
     Indication: HYPERTENSION
     Dosage: 20 MG EVERY DAY PO
     Route: 048
     Dates: start: 20080320, end: 20081122
  2. BISMUTH SUBSALICYLATE IN OIL INJ [Concomitant]
  3. BOTULINUM TOXIN TYPE A [Concomitant]
  4. FOLIC ACID [Concomitant]
  5. IBUPROFEN [Concomitant]
  6. LISINOPRIL AND HYDROCHLOROTHIAZIDE [Concomitant]
  7. NICOTINE [Concomitant]
  8. OMEPRAZOLE [Concomitant]
  9. PRENATAL-PLUS RX VITAMINS/MINERALS [Concomitant]
  10. THIAMINE HCL [Concomitant]
  11. VARDENAFIL HCL [Concomitant]

REACTIONS (2)
  - LIP SWELLING [None]
  - SWELLING FACE [None]
